FAERS Safety Report 24061803 (Version 2)
Quarter: 2025Q2

REPORT INFORMATION
  Report Type: Spontaneous
  Country: PL (occurrence: PL)
  Receive Date: 20240708
  Receipt Date: 20250428
  Transmission Date: 20250717
  Serious: Yes (Other)
  Sender: MYLAN
  Company Number: PL-002147023-NVSC2024PL129967

PATIENT
  Age: 65 Year
  Sex: Female

DRUGS (28)
  1. IMATINIB [Suspect]
     Active Substance: IMATINIB
     Indication: Chronic myeloid leukaemia
     Route: 065
  2. IMATINIB [Suspect]
     Active Substance: IMATINIB
  3. IMATINIB [Suspect]
     Active Substance: IMATINIB
  4. IMATINIB [Suspect]
     Active Substance: IMATINIB
     Route: 065
  5. IMATINIB [Suspect]
     Active Substance: IMATINIB
     Route: 065
  6. IMATINIB [Suspect]
     Active Substance: IMATINIB
  7. IMATINIB [Suspect]
     Active Substance: IMATINIB
  8. IMATINIB [Suspect]
     Active Substance: IMATINIB
     Route: 065
  9. IMATINIB [Suspect]
     Active Substance: IMATINIB
     Route: 065
  10. IMATINIB [Suspect]
     Active Substance: IMATINIB
     Route: 065
  11. IMATINIB [Suspect]
     Active Substance: IMATINIB
  12. IMATINIB [Suspect]
     Active Substance: IMATINIB
  13. NILOTINIB [Suspect]
     Active Substance: NILOTINIB
     Indication: Chronic myeloid leukaemia
  14. NILOTINIB [Suspect]
     Active Substance: NILOTINIB
  15. NILOTINIB [Suspect]
     Active Substance: NILOTINIB
     Route: 065
  16. NILOTINIB [Suspect]
     Active Substance: NILOTINIB
     Route: 065
  17. NILOTINIB [Suspect]
     Active Substance: NILOTINIB
  18. NILOTINIB [Suspect]
     Active Substance: NILOTINIB
  19. NILOTINIB [Suspect]
     Active Substance: NILOTINIB
     Route: 065
  20. NILOTINIB [Suspect]
     Active Substance: NILOTINIB
     Route: 065
  21. BOSUTINIB [Suspect]
     Active Substance: BOSUTINIB
     Indication: Product used for unknown indication
     Dosage: 500 MILLIGRAM, QD
  22. BOSUTINIB [Suspect]
     Active Substance: BOSUTINIB
     Dosage: 500 MILLIGRAM, QD
     Route: 065
  23. BOSUTINIB [Suspect]
     Active Substance: BOSUTINIB
     Dosage: 500 MILLIGRAM, QD
     Route: 065
  24. BOSUTINIB [Suspect]
     Active Substance: BOSUTINIB
     Dosage: 500 MILLIGRAM, QD
  25. ASCIMINIB [Suspect]
     Active Substance: ASCIMINIB
     Indication: Product used for unknown indication
     Dosage: 40 MILLIGRAM, BID
  26. ASCIMINIB [Suspect]
     Active Substance: ASCIMINIB
     Dosage: 40 MILLIGRAM, BID
     Route: 065
  27. ASCIMINIB [Suspect]
     Active Substance: ASCIMINIB
     Dosage: 40 MILLIGRAM, BID
     Route: 065
  28. ASCIMINIB [Suspect]
     Active Substance: ASCIMINIB
     Dosage: 40 MILLIGRAM, BID

REACTIONS (6)
  - Neutropenia [Unknown]
  - Thrombocytopenia [Unknown]
  - Toxicity to various agents [Unknown]
  - Drug ineffective [Unknown]
  - Intentional product use issue [Unknown]
  - Dose calculation error [Unknown]

NARRATIVE: CASE EVENT DATE: 20220901
